FAERS Safety Report 7708751-8 (Version None)
Quarter: 2011Q3

REPORT INFORMATION
  Report Type: 
  Country: None (occurrence: None)
  Receive Date: 20110825
  Receipt Date: 20110825
  Transmission Date: 20111222
  Serious: Yes (Other)
  Sender: FDA-Public Use
  Company Number: None

PATIENT
  Age: 22 Year
  Sex: Male
  Weight: 80 kg

DRUGS (1)
  1. PROSCAR [Suspect]
     Indication: ALOPECIA
     Dosage: 1MG
     Route: 048
     Dates: start: 20110601, end: 20110823

REACTIONS (8)
  - CONFUSIONAL STATE [None]
  - DEREALISATION [None]
  - DISTURBANCE IN ATTENTION [None]
  - CRYING [None]
  - ANXIETY [None]
  - SUICIDAL IDEATION [None]
  - DEPERSONALISATION [None]
  - DEPRESSION [None]
